FAERS Safety Report 10082423 (Version 1)
Quarter: 2014Q2

REPORT INFORMATION
  Report Type: Spontaneous
  Country: JP (occurrence: None)
  Receive Date: 20140409
  Receipt Date: 20140409
  Transmission Date: 20141212
  Serious: Yes (Other)
  Sender: FDA-Public Use
  Company Number: B0911493A

PATIENT
  Sex: Female

DRUGS (3)
  1. PAROXETINE HYDROCHLORIDE [Suspect]
     Indication: OBSESSIVE-COMPULSIVE DISORDER
     Route: 048
     Dates: start: 201212
  2. PAROXETINE HYDROCHLORIDE [Suspect]
     Indication: OBSESSIVE-COMPULSIVE DISORDER
     Dosage: 10 MG/PER DAY/ORAL
     Route: 048
  3. PAROXETINE HYDROCHLORIDE [Suspect]
     Dosage: 20 MG/PER DAY/ORAL
     Route: 048

REACTIONS (2)
  - Exposure during pregnancy [None]
  - Obsessive-compulsive disorder [None]
